FAERS Safety Report 6905864-5 (Version None)
Quarter: 2010Q3

REPORT INFORMATION
  Report Type: 
  Country: None (occurrence: None)
  Receive Date: 20100804
  Receipt Date: 20100721
  Transmission Date: 20110219
  Serious: Yes (Hospitalization, Other)
  Sender: FDA-Public Use
  Company Number: US-ELI_LILLY_AND_COMPANY-US201006004353

PATIENT
  Sex: Male
  Weight: 147.39 kg

DRUGS (8)
  1. EFFIENT [Suspect]
     Indication: PERCUTANEOUS CORONARY INTERVENTION
     Dosage: 40 MG, OTHER
     Dates: start: 20100603, end: 20100603
  2. EFFIENT [Suspect]
     Dosage: 10 MG, DAILY (1/D)
     Dates: start: 20100604
  3. ASPIRIN [Concomitant]
     Dosage: 325 MG, DAILY (1/D)
     Route: 048
  4. ANGIOMAX [Concomitant]
     Dosage: UNK, UNK
  5. GLUCOTROL XL [Concomitant]
     Dosage: 2.5 MG, DAILY (1/D)
     Route: 048
  6. KLOR-CON [Concomitant]
     Dosage: 10 MEQ, DAILY (1/D)
     Route: 048
  7. CRESTOR [Concomitant]
     Dosage: 20 MG, EACH EVENING
     Route: 048
  8. DIOVAN HCT [Concomitant]
     Dosage: 80/12.5 MG, DAILY (1/D)
     Route: 048

REACTIONS (5)
  - CORONARY ARTERY RESTENOSIS [None]
  - MEDICATION ERROR [None]
  - VESSEL PUNCTURE SITE HAEMATOMA [None]
  - VESSEL PUNCTURE SITE HAEMORRHAGE [None]
  - VESSEL PUNCTURE SITE PAIN [None]
